FAERS Safety Report 21838043 (Version 5)
Quarter: 2023Q1

REPORT INFORMATION
  Report Type: Report from Study
  Country: CN (occurrence: None)
  Receive Date: 20230109
  Receipt Date: 20230322
  Transmission Date: 20230418
  Serious: Yes (Hospitalization)
  Sender: FDA-Public Use
  Company Number: CN-ROCHE-3257511

PATIENT
  Age: 48 Year
  Sex: Female
  Weight: 58 kg

DRUGS (19)
  1. PLACEBO [Suspect]
     Active Substance: UNSPECIFIED INGREDIENT
     Indication: HER2 positive breast cancer
     Dosage: ON 14/DEC/2022, SHE RECEIVED MOST RECENT DOSE OF BLINDED ATEZOLIZUMAB PRIOR TO ADVERSE EVENT ONSET.
     Route: 041
     Dates: start: 20221010
  2. ADO-TRASTUZUMAB EMTANSINE [Suspect]
     Active Substance: ADO-TRASTUZUMAB EMTANSINE
     Indication: HER2 positive breast cancer
     Dosage: ON 14/DEC/2022, SHE RECEIVED MOST RECENT DOSE (198 MG/KG) OF TRASTUZUMAB EMTANSINE PRIOR TO ADVERSE
     Route: 042
     Dates: start: 20221010
  3. THROMBOPOIETIN [Concomitant]
     Active Substance: THROMBOPOIETIN
     Dates: start: 20221017
  4. THROMBOPOIETIN [Concomitant]
     Active Substance: THROMBOPOIETIN
     Dates: start: 20230104, end: 20230109
  5. OPRELVEKIN [Concomitant]
     Active Substance: OPRELVEKIN
     Dates: start: 20221017
  6. OPRELVEKIN [Concomitant]
     Active Substance: OPRELVEKIN
     Dates: start: 20230106, end: 20230109
  7. HEROMBOPAG OLAMINE [Concomitant]
     Dates: start: 20221017
  8. ONDANSETRON HYDROCHLORIDE [Concomitant]
     Active Substance: ONDANSETRON HYDROCHLORIDE
     Dates: start: 20221013
  9. FIBROBLAST GROWTH FACTOR 2 (BOVINE) [Concomitant]
     Active Substance: FIBROBLAST GROWTH FACTOR 2 (BOVINE)
     Dates: start: 20221027
  10. CAFFEIC ACID [Concomitant]
     Active Substance: CAFFEIC ACID
     Dates: start: 20221123, end: 20221206
  11. CAFFEIC ACID [Concomitant]
     Active Substance: CAFFEIC ACID
     Dates: start: 20230104, end: 20230130
  12. CAFFEIC ACID [Concomitant]
     Active Substance: CAFFEIC ACID
     Dates: start: 20230220
  13. HUMAN GRANULOCYTE COLONY STIMULATING FACTOR INJECTION (UNK INGREDIENTS [Concomitant]
     Indication: White blood cell count increased
     Dates: start: 20230106, end: 20230106
  14. HUMAN GRANULOCYTE COLONY STIMULATING FACTOR INJECTION (UNK INGREDIENTS [Concomitant]
     Indication: Neutrophil count increased
     Dates: start: 20230111, end: 20230111
  15. HUMAN GRANULOCYTE COLONY STIMULATING FACTOR INJECTION (UNK INGREDIENTS [Concomitant]
     Dates: start: 20230117, end: 20230117
  16. ALBUMIN HUMAN [Concomitant]
     Active Substance: ALBUMIN HUMAN
     Dates: start: 20230111, end: 20230112
  17. ACETYLCYSTEINE [Concomitant]
     Active Substance: ACETYLCYSTEINE
     Dates: start: 20230115, end: 20230117
  18. ACETYLCYSTEINE [Concomitant]
     Active Substance: ACETYLCYSTEINE
     Dates: start: 20230105, end: 20230117
  19. BUDESONIDE [Concomitant]
     Active Substance: BUDESONIDE
     Dates: start: 20230105, end: 20230117

REACTIONS (1)
  - COVID-19 [Not Recovered/Not Resolved]

NARRATIVE: CASE EVENT DATE: 20221228
